FAERS Safety Report 10561260 (Version 1)
Quarter: 2014Q4

REPORT INFORMATION
  Report Type: Spontaneous
  Country: HR (occurrence: HR)
  Receive Date: 20141103
  Receipt Date: 20141103
  Transmission Date: 20150529
  Serious: Yes (Hospitalization)
  Sender: FDA-Public Use
  Company Number: HR-MYLANLABS-2014M1009328

PATIENT

DRUGS (3)
  1. VALPROATE [Suspect]
     Active Substance: VALPROATE SODIUM
     Indication: BIPOLAR DISORDER
     Dosage: 1000 MG/DAY
     Route: 065
  2. SERTRALINE [Concomitant]
     Active Substance: SERTRALINE HYDROCHLORIDE
     Indication: BIPOLAR DISORDER
     Dosage: 50MG/DAY
     Route: 065
  3. VALPROATE [Suspect]
     Active Substance: VALPROATE SODIUM
     Dosage: UNKNOWN AMOUNT
     Route: 065

REACTIONS (8)
  - Toxicity to various agents [None]
  - Neuropathy peripheral [Recovered/Resolved]
  - Suicide attempt [None]
  - Mental status changes [Recovered/Resolved]
  - Toxicity to various agents [Recovering/Resolving]
  - Muscular weakness [None]
  - Overdose [Recovering/Resolving]
  - Peripheral nerve paresis [None]
